FAERS Safety Report 9918385 (Version 1)
Quarter: 2014Q1

REPORT INFORMATION
  Report Type: Spontaneous
  Country: US (occurrence: US)
  Receive Date: 20140224
  Receipt Date: 20140224
  Transmission Date: 20141002
  Serious: No
  Sender: FDA-Public Use
  Company Number: US-BIOGENIDEC-2014BI016874

PATIENT
  Sex: Female

DRUGS (1)
  1. TYSABRI [Suspect]
     Indication: MULTIPLE SCLEROSIS
     Route: 042
     Dates: start: 20130107

REACTIONS (4)
  - Fall [Recovered/Resolved]
  - Loss of control of legs [Recovered/Resolved]
  - Drug ineffective [Recovered/Resolved]
  - Fatigue [Recovered/Resolved]
